FAERS Safety Report 10025057 (Version 1)
Quarter: 2014Q1

REPORT INFORMATION
  Report Type: Spontaneous
  Country: US (occurrence: None)
  Receive Date: 20140314
  Receipt Date: 20140314
  Transmission Date: 20141002
  Serious: Yes (Other)
  Sender: FDA-Public Use
  Company Number: 2014-US-002388

PATIENT
  Age: 42 Year
  Sex: Male
  Weight: 61.7 kg

DRUGS (2)
  1. XYREM [Suspect]
     Indication: FIBROMYALGIA
     Route: 048
     Dates: start: 200802, end: 2008
  2. SOMA (CARISOPRODOL) [Concomitant]

REACTIONS (4)
  - Performance status decreased [None]
  - Muscle spasms [None]
  - Condition aggravated [None]
  - Off label use [None]
